FAERS Safety Report 22317132 (Version 7)
Quarter: 2024Q2

REPORT INFORMATION
  Report Type: Report from Study
  Country: AU (occurrence: AU)
  Receive Date: 20230514
  Receipt Date: 20240508
  Transmission Date: 20240716
  Serious: Yes (Life-Threatening, Hospitalization, Other)
  Sender: FDA-Public Use
  Company Number: AU-JNJFOC-20230522488

PATIENT
  Age: 80 Year
  Sex: Male
  Weight: 75.3 kg

DRUGS (27)
  1. ABIRATERONE ACETATE [Suspect]
     Active Substance: ABIRATERONE ACETATE
     Indication: Hormone-dependent prostate cancer
     Dosage: DATE OF LAST DOSE BEFORE EVENT: 02-MAY-2023
     Route: 048
     Dates: start: 20230323, end: 20230508
  2. ABEMACICLIB [Suspect]
     Active Substance: ABEMACICLIB
     Indication: Hormone-dependent prostate cancer
     Dosage: DATE OF LAST DOSE BEFORE EVENT: 02-MAY-2023
     Route: 065
     Dates: start: 20230323, end: 20230412
  3. ABEMACICLIB [Suspect]
     Active Substance: ABEMACICLIB
     Route: 065
     Dates: start: 20230419, end: 20230510
  4. PREDNISOLONE [Suspect]
     Active Substance: PREDNISOLONE
     Indication: Hormone-dependent prostate cancer
     Dosage: DATE OF LAST DOSE BEFORE EVENT: 02-MAY-2023
     Route: 048
     Dates: start: 20230323, end: 20230508
  5. PREDNISOLONE [Suspect]
     Active Substance: PREDNISOLONE
     Route: 048
  6. OMEPRAZOLE [Concomitant]
     Active Substance: DONEPEZIL HYDROCHLORIDE\OMEPRAZOLE\OMEPRAZOLE MAGNESIUM
     Indication: Erosive duodenitis
     Route: 065
     Dates: start: 20181001
  7. TAPENTADOL [Concomitant]
     Active Substance: TAPENTADOL
     Indication: Pain
     Route: 065
     Dates: start: 20221226
  8. CLOPIDOGREL [Concomitant]
     Active Substance: CLOPIDOGREL BISULFATE
     Indication: Prophylaxis
     Route: 065
     Dates: start: 20130222
  9. DUTASTERIDE\TAMSULOSIN [Concomitant]
     Active Substance: DUTASTERIDE\TAMSULOSIN
     Indication: Hormone-dependent prostate cancer
     Route: 065
     Dates: start: 20201117
  10. HYLO FORTE [Concomitant]
     Indication: Dry eye
     Dates: start: 20211111
  11. JARDIANCE [Concomitant]
     Active Substance: EMPAGLIFLOZIN
     Indication: Type 2 diabetes mellitus
     Route: 065
     Dates: start: 20190423
  12. LIPIDIL [Concomitant]
     Active Substance: FENOFIBRATE
     Indication: Dyslipidaemia
     Route: 065
     Dates: start: 20190729
  13. LIPITOR [Concomitant]
     Active Substance: ATORVASTATIN CALCIUM
     Indication: Dyslipidaemia
     Route: 065
     Dates: start: 20121023
  14. METFORMIN HYDROCHLORIDE [Concomitant]
     Active Substance: METFORMIN HYDROCHLORIDE
     Indication: Type 2 diabetes mellitus
     Route: 065
     Dates: start: 20121023
  15. NORVASC [Concomitant]
     Active Substance: AMLODIPINE BESYLATE
     Indication: Hypertension
     Route: 065
     Dates: start: 20130222
  16. INSULIN GLARGINE [Concomitant]
     Active Substance: INSULIN GLARGINE
     Indication: Type 2 diabetes mellitus
     Dosage: DECREASED DOSE OF 12 UNITS DAILY
     Route: 065
     Dates: start: 20131111
  17. OCUFLOX [Concomitant]
     Active Substance: OFLOXACIN
     Indication: Eye infection
     Route: 065
     Dates: start: 20220411
  18. BICALUTAMIDE [Concomitant]
     Active Substance: BICALUTAMIDE
     Indication: Hormone-dependent prostate cancer
     Route: 065
     Dates: start: 20230215
  19. LEUPROLIDE ACETATE [Concomitant]
     Active Substance: ISOPROPYL ALCOHOL\LEUPROLIDE ACETATE
     Indication: Hormone-dependent prostate cancer
     Route: 030
     Dates: start: 20230301
  20. APO-METOPROLOL (TYPE L) [Concomitant]
     Indication: Hypertension
     Route: 065
     Dates: start: 20230412
  21. BUDESONIDE [Concomitant]
     Active Substance: BUDESONIDE
     Indication: Product used for unknown indication
     Route: 065
  22. MAGNESIUM ASPARTATE [Concomitant]
     Active Substance: MAGNESIUM ASPARTATE
     Indication: Product used for unknown indication
     Route: 065
  23. ASPIRIN [Concomitant]
     Active Substance: ASPIRIN
     Indication: Product used for unknown indication
     Route: 065
  24. METOPROLOL [Concomitant]
     Active Substance: METOPROLOL
     Indication: Product used for unknown indication
     Route: 065
  25. EMPAGLIFLOZIN [Concomitant]
     Active Substance: EMPAGLIFLOZIN
     Indication: Product used for unknown indication
     Route: 065
  26. FUROSEMIDE [Concomitant]
     Active Substance: FUROSEMIDE
     Route: 065
  27. FUROSEMIDE [Concomitant]
     Active Substance: FUROSEMIDE
     Route: 065

REACTIONS (13)
  - Cardiac failure congestive [Not Recovered/Not Resolved]
  - Acute myocardial infarction [Not Recovered/Not Resolved]
  - Pulmonary hypertension [Unknown]
  - Acute kidney injury [Unknown]
  - Hyperthyroidism [Unknown]
  - Vitamin D deficiency [Unknown]
  - Neutrophil count decreased [Unknown]
  - Ageusia [Unknown]
  - Malnutrition [Unknown]
  - Decreased appetite [Unknown]
  - Skin ulcer [Unknown]
  - Constipation [Unknown]
  - SARS-CoV-2 test positive [Unknown]

NARRATIVE: CASE EVENT DATE: 20230412
